FAERS Safety Report 15194889 (Version 1)
Quarter: 2018Q3

REPORT INFORMATION
  Report Type: Spontaneous
  Country: US (occurrence: US)
  Receive Date: 20180725
  Receipt Date: 20180725
  Transmission Date: 20181010
  Serious: Yes (Other)
  Sender: FDA-Public Use
  Company Number: US-EMD SERONO-9036330

PATIENT
  Age: 65 Year
  Sex: Male

DRUGS (1)
  1. RECOMBINANT HUMAN GROWTH HORMONE (RHGH) [Suspect]
     Active Substance: SOMATROPIN
     Indication: MUSCLE BUILDING THERAPY

REACTIONS (2)
  - Acromegaly [Unknown]
  - Drug abuse [Unknown]
